FAERS Safety Report 7396969-6 (Version None)
Quarter: 2011Q1

REPORT INFORMATION
  Report Type: 
  Country: None (occurrence: None)
  Receive Date: 20110331
  Receipt Date: 20110331
  Transmission Date: 20110831
  Serious: No
  Sender: FDA-Public Use
  Company Number: None

PATIENT
  Age: 54 Year
  Sex: Female
  Weight: 83.0083 kg

DRUGS (1)
  1. CYMBALTA [Suspect]
     Indication: ARTHRITIS
     Dosage: 30MG 1X/DAY
     Dates: start: 20110207

REACTIONS (3)
  - DIARRHOEA [None]
  - NAUSEA [None]
  - FAECES DISCOLOURED [None]
